FAERS Safety Report 6026307-2 (Version None)
Quarter: 2008Q4

REPORT INFORMATION
  Report Type: 
  Country: None (occurrence: None)
  Receive Date: 20081224
  Receipt Date: 20081118
  Transmission Date: 20090506
  Serious: Yes (Hospitalization)
  Sender: FDA-Public Use
  Company Number: 0310

PATIENT
  Age: 33 Year
  Sex: Female

DRUGS (4)
  1. METHYLDOPA [Suspect]
     Indication: HYPERTENSION
     Dosage: 1000 MG PO
     Route: 048
  2. CLOPAMIDE [Concomitant]
  3. FUROSEMIDE [Concomitant]
  4. METHYLPREDNISONE SODIUM SUCCINATE [Concomitant]

REACTIONS (24)
  - ABORTION INDUCED [None]
  - ANAEMIA [None]
  - BLOOD LACTATE DEHYDROGENASE INCREASED [None]
  - BLOOD PRESSURE FLUCTUATION [None]
  - CAESAREAN SECTION [None]
  - DISEASE PROGRESSION [None]
  - DISEASE RECURRENCE [None]
  - DRUG EXPOSURE DURING PREGNANCY [None]
  - DRUG INEFFECTIVE [None]
  - DRUG TOXICITY [None]
  - FOETAL GROWTH RETARDATION [None]
  - GAIT DISTURBANCE [None]
  - GROWTH RETARDATION [None]
  - HAEMODIALYSIS [None]
  - NEPHRITIC SYNDROME [None]
  - PLACENTAL DISORDER [None]
  - PRE-ECLAMPSIA [None]
  - PREGNANCY [None]
  - PREMATURE BABY [None]
  - REFUSAL OF TREATMENT BY PATIENT [None]
  - RENAL FAILURE CHRONIC [None]
  - SMALL FOR DATES BABY [None]
  - TREATMENT NONCOMPLIANCE [None]
  - WHITE BLOOD CELL COUNT INCREASED [None]
